FAERS Safety Report 22067502 (Version 1)
Quarter: 2023Q1

REPORT INFORMATION
  Report Type: Spontaneous
  Country: US (occurrence: US)
  Receive Date: 20230307
  Receipt Date: 20230307
  Transmission Date: 20230418
  Serious: No
  Sender: FDA-Public Use
  Company Number: US-002147023-NVSC2023US050996

PATIENT
  Age: 75 Year
  Sex: Male

DRUGS (1)
  1. XIIDRA [Suspect]
     Active Substance: LIFITEGRAST
     Indication: Cataract operation
     Dosage: UNK UNK, BID
     Route: 047
     Dates: start: 20230302

REACTIONS (2)
  - Mydriasis [Recovered/Resolved]
  - Vision blurred [Recovered/Resolved]
